FAERS Safety Report 15868877 (Version 1)
Quarter: 2019Q1

REPORT INFORMATION
  Report Type: Spontaneous
  Country: US (occurrence: US)
  Receive Date: 20190125
  Receipt Date: 20190125
  Transmission Date: 20190417
  Serious: No
  Sender: FDA-Public Use
  Company Number: US-GLAXOSMITHKLINE-US2019009246

PATIENT
  Age: 57 Year
  Sex: Female

DRUGS (1)
  1. LAMISIL AT CONTINUOUS SPRAY [Suspect]
     Active Substance: TERBINAFINE HYDROCHLORIDE
     Indication: PRURITUS
     Dosage: UNK
     Dates: end: 20190114

REACTIONS (5)
  - Inappropriate schedule of product administration [Unknown]
  - Sensory disturbance [Unknown]
  - Pruritus [Unknown]
  - Skin hypertrophy [Unknown]
  - Skin fissures [Unknown]
